FAERS Safety Report 15496862 (Version 3)
Quarter: 2020Q2

REPORT INFORMATION
  Report Type: Spontaneous
  Country: FR (occurrence: FR)
  Receive Date: 20181015
  Receipt Date: 20200429
  Transmission Date: 20200713
  Serious: Yes (Hospitalization)
  Sender: FDA-Public Use
  Company Number: FR-BIOGEN-2018BI00644355

PATIENT
  Age: 68 Year
  Sex: Male

DRUGS (1)
  1. TYSABRI [Suspect]
     Active Substance: NATALIZUMAB
     Indication: MULTIPLE SCLEROSIS
     Route: 042
     Dates: start: 201701, end: 201806

REACTIONS (2)
  - B-cell lymphoma [Not Recovered/Not Resolved]
  - Central nervous system lymphoma [Recovered/Resolved with Sequelae]

NARRATIVE: CASE EVENT DATE: 20180711
